FAERS Safety Report 9120368 (Version 2)
Quarter: 2013Q1

REPORT INFORMATION
  Report Type: Spontaneous
  Country: US (occurrence: US)
  Receive Date: 20130226
  Receipt Date: 20130307
  Transmission Date: 20140127
  Serious: Yes (Other)
  Sender: FDA-Public Use
  Company Number: CHPA2012US004656

PATIENT
  Age: 78 Year
  Sex: Female

DRUGS (1)
  1. VOLTAREN GEL [Suspect]
     Indication: ARTHRALGIA
     Dosage: 4 G, BID
     Route: 061
     Dates: start: 20111216, end: 20120112

REACTIONS (9)
  - Cataract [Recovered/Resolved]
  - Nodule [Recovered/Resolved]
  - Pain [Recovered/Resolved]
  - Skin exfoliation [Recovered/Resolved]
  - Hypertension [Recovered/Resolved]
  - Alopecia [Recovered/Resolved]
  - Local swelling [Recovered/Resolved]
  - Swelling face [Recovered/Resolved]
  - Off label use [Unknown]
